FAERS Safety Report 5494206-0 (Version None)
Quarter: 2007Q4

REPORT INFORMATION
  Report Type: 
  Country: None (occurrence: None)
  Receive Date: 20071022
  Receipt Date: 20071005
  Transmission Date: 20080405
  Serious: Yes (Hospitalization)
  Sender: FDA-Public Use
  Company Number: 2007BI020541

PATIENT
  Age: 48 Year
  Sex: Female

DRUGS (1)
  1. AVONEX [Suspect]
     Indication: MULTIPLE SCLEROSIS
     Dosage: 30 UG;QW;IM
     Route: 030
     Dates: start: 19980101

REACTIONS (6)
  - CONDITION AGGRAVATED [None]
  - FALL [None]
  - GLAUCOMA [None]
  - MOOD ALTERED [None]
  - MULTIPLE SCLEROSIS [None]
  - RETINAL PIGMENTATION [None]
